FAERS Safety Report 4976585-3 (Version None)
Quarter: 2006Q2

REPORT INFORMATION
  Report Type: 
  Country: None (occurrence: None)
  Receive Date: 20060418
  Receipt Date: 20060418
  Transmission Date: 20061013
  Serious: Yes (Other)
  Sender: FDA-Public Use
  Company Number: None

PATIENT
  Sex: Female
  Weight: 49.8957 kg

DRUGS (2)
  1. NUVARING [Suspect]
     Indication: DYSMENORRHOEA
     Dosage: DOSE NOT CONTROLLED   3 WEEKS   VAG; 0.120 ETONOGESTREL/0.015 ESTRADIOL. PER DAY  VAG
     Route: 067
     Dates: start: 20060127, end: 20060202
  2. NUVARING [Suspect]
     Indication: PELVIC PAIN
     Dosage: DOSE NOT CONTROLLED   3 WEEKS   VAG; 0.120 ETONOGESTREL/0.015 ESTRADIOL. PER DAY  VAG
     Route: 067
     Dates: start: 20060127, end: 20060202

REACTIONS (21)
  - BLOOD GLUCOSE ABNORMAL [None]
  - BLOOD PRESSURE INCREASED [None]
  - BLOOD TEST ABNORMAL [None]
  - CONTUSION [None]
  - ERYTHEMA [None]
  - FATIGUE [None]
  - FUNGAL INFECTION [None]
  - HEADACHE [None]
  - HYPOAESTHESIA [None]
  - MALAISE [None]
  - MIDDLE INSOMNIA [None]
  - MUSCLE TWITCHING [None]
  - NAUSEA [None]
  - OEDEMA PERIPHERAL [None]
  - PAIN IN EXTREMITY [None]
  - PALPITATIONS [None]
  - PHOTOPSIA [None]
  - SLEEP DISORDER [None]
  - STRESS [None]
  - TREMOR [None]
  - WEIGHT DECREASED [None]
